FAERS Safety Report 20818900 (Version 3)
Quarter: 2022Q2

REPORT INFORMATION
  Report Type: Spontaneous
  Country: RU (occurrence: RU)
  Receive Date: 20220512
  Receipt Date: 20220527
  Transmission Date: 20220720
  Serious: Yes (Hospitalization)
  Sender: FDA-Public Use
  Company Number: RU-SA-2022SA165782

PATIENT
  Age: 4 Year
  Sex: Male

DRUGS (6)
  1. LANTUS SOLOSTAR [Suspect]
     Active Substance: INSULIN GLARGINE
     Indication: Type 1 diabetes mellitus
     Dosage: 0.75 IU, QD
     Route: 058
     Dates: start: 202112, end: 202204
  2. LANTUS SOLOSTAR [Suspect]
     Active Substance: INSULIN GLARGINE
     Dosage: 0.5 IU
     Route: 058
     Dates: start: 202204, end: 202204
  3. LANTUS SOLOSTAR [Suspect]
     Active Substance: INSULIN GLARGINE
     Dosage: 0.75 IU, QD
     Route: 058
     Dates: start: 202205
  4. LANTUS SOLOSTAR [Suspect]
     Active Substance: INSULIN GLARGINE
     Dosage: 1.5 IU (0.25 IU WERE ADDED GRADUALLY)
     Route: 058
     Dates: start: 20220511
  5. INSULIN ASPART [Suspect]
     Active Substance: INSULIN ASPART
     Indication: Type 1 diabetes mellitus
     Dosage: 1.25 IU, TID
     Route: 058
     Dates: start: 202112
  6. INSULIN ASPART [Suspect]
     Active Substance: INSULIN ASPART
     Dosage: 0.5 IU
     Route: 058
     Dates: start: 2022

REACTIONS (3)
  - Asthma [Unknown]
  - Bronchitis [Unknown]
  - Hyperglycaemia [Recovering/Resolving]

NARRATIVE: CASE EVENT DATE: 20220426
